FAERS Safety Report 13976963 (Version 1)
Quarter: 2017Q3

REPORT INFORMATION
  Report Type: Spontaneous
  Country: US (occurrence: US)
  Receive Date: 20170915
  Receipt Date: 20170915
  Transmission Date: 20171128
  Serious: No
  Sender: FDA-Public Use
  Company Number: US-ROCHE-675997

PATIENT
  Sex: Female
  Weight: 98.6 kg

DRUGS (9)
  1. HERCEPTIN [Suspect]
     Active Substance: TRASTUZUMAB
     Indication: BREAST CANCER METASTATIC
     Dosage: STARTING DOSE
     Route: 042
  2. HERCEPTIN [Suspect]
     Active Substance: TRASTUZUMAB
     Route: 042
  3. HERCEPTIN [Suspect]
     Active Substance: TRASTUZUMAB
     Dosage: FREQUENCY: INCONSISTENT SCHEDULE
     Route: 042
  4. HERCEPTIN [Suspect]
     Active Substance: TRASTUZUMAB
     Dosage: FREQUENCY: INCONSISTENT SCHEDULE
     Route: 042
     Dates: start: 20091022, end: 20091022
  5. HERCEPTIN [Suspect]
     Active Substance: TRASTUZUMAB
     Dosage: FREQUENCY: INCONSISTENT SCHEDULE
     Route: 042
  6. HERCEPTIN [Suspect]
     Active Substance: TRASTUZUMAB
     Dosage: FREQUENCY: INCONSISTENT SCHEDULE
     Route: 042
  7. HERCEPTIN [Suspect]
     Active Substance: TRASTUZUMAB
     Dosage: FREQUENCY: INCONSISTENT SCHEDULE
     Route: 042
  8. HERCEPTIN [Suspect]
     Active Substance: TRASTUZUMAB
     Dosage: FREQUENCY: INCONSISTENT SCHEDULE
     Route: 042
  9. HERCEPTIN [Suspect]
     Active Substance: TRASTUZUMAB
     Dosage: FREQUENCY: INCONSISTENT SCHEDULE
     Route: 042

REACTIONS (3)
  - Tremor [Recovered/Resolved]
  - Muscle twitching [Unknown]
  - Gait disturbance [Unknown]
